FAERS Safety Report 20771433 (Version 2)
Quarter: 2022Q2

REPORT INFORMATION
  Report Type: Report from Study
  Country: JP (occurrence: JP)
  Receive Date: 20220429
  Receipt Date: 20220526
  Transmission Date: 20220721
  Serious: Yes (Hospitalization)
  Sender: FDA-Public Use
  Company Number: JP-NBI-J202207278BIPI

PATIENT
  Age: 68 Year
  Sex: Female
  Weight: 78.8 kg

DRUGS (11)
  1. GILOTRIF [Suspect]
     Active Substance: AFATINIB
     Indication: Lung adenocarcinoma
     Route: 048
     Dates: start: 20220325, end: 20220421
  2. GILOTRIF [Suspect]
     Active Substance: AFATINIB
     Indication: Non-small cell lung cancer
  3. CLOBETASONE BUTYRATE [Concomitant]
     Active Substance: CLOBETASONE BUTYRATE
     Indication: Rash
     Route: 065
     Dates: start: 20220331, end: 20220414
  4. HEPARINOID [Concomitant]
     Indication: Dry skin
     Route: 065
     Dates: start: 20220404, end: 20220414
  5. DIFLUPREDNATE [Concomitant]
     Active Substance: DIFLUPREDNATE
     Indication: Rash
     Route: 065
     Dates: start: 20220404, end: 20220414
  6. NAUZELIN [Concomitant]
     Active Substance: DOMPERIDONE
     Indication: Nausea
     Route: 048
     Dates: start: 20220407, end: 20220414
  7. LOPERAMIDE [Concomitant]
     Active Substance: LOPERAMIDE
     Indication: Diarrhoea
     Route: 048
     Dates: start: 20220327
  8. LOPERAMIDE [Concomitant]
     Active Substance: LOPERAMIDE
     Route: 048
     Dates: start: 20220406, end: 20220414
  9. DIETARY SUPPLEMENT\PROBIOTICS [Concomitant]
     Active Substance: DIETARY SUPPLEMENT\PROBIOTICS
     Indication: Diarrhoea
     Route: 048
     Dates: start: 20220404, end: 20220414
  10. HACHIAZULE [Concomitant]
     Indication: Stomatitis
     Route: 065
     Dates: start: 20220329, end: 20220414
  11. SALEX:OINTMENT [Concomitant]
     Indication: Paronychia
     Route: 065
     Dates: start: 20220330, end: 20220414

REACTIONS (4)
  - Diarrhoea [Recovered/Resolved]
  - Vomiting [Recovered/Resolved]
  - Prerenal failure [Recovered/Resolved]
  - Device related infection [Recovered/Resolved]

NARRATIVE: CASE EVENT DATE: 20220405
